FAERS Safety Report 8099702-8 (Version None)
Quarter: 2012Q1

REPORT INFORMATION
  Report Type: 
  Country: None (occurrence: None)
  Receive Date: 20120129
  Receipt Date: 20110906
  Transmission Date: 20120608
  Serious: No
  Sender: FDA-Public Use
  Company Number: US-ABBOTT-11P-163-0852016-00

PATIENT
  Age: 49 Year
  Sex: Female

DRUGS (4)
  1. LISINOPRIL [Concomitant]
     Indication: BLOOD PRESSURE
     Route: 048
  2. CAPEX [Concomitant]
     Indication: PSORIASIS
     Dosage: AS NEEDED
  3. HUMIRA [Suspect]
     Indication: PSORIASIS
     Dates: start: 20061001
  4. BIRTH CONTROL [Concomitant]
     Indication: PRODUCT USED FOR UNKNOWN INDICATION
     Dosage: ONCE DAILY
     Route: 048

REACTIONS (5)
  - COUGH [None]
  - RHINORRHOEA [None]
  - PYREXIA [None]
  - LOWER RESPIRATORY TRACT INFECTION [None]
  - CHEST DISCOMFORT [None]
